FAERS Safety Report 5351408-1 (Version None)
Quarter: 2007Q2

REPORT INFORMATION
  Report Type: 
  Country: None (occurrence: None)
  Receive Date: 20070521
  Receipt Date: 20070126
  Transmission Date: 20071010
  Serious: No
  Sender: FDA-Public Use
  Company Number: WAES 0611USA04468

PATIENT
  Age: 50 Year
  Sex: Female
  Weight: 112.0385 kg

DRUGS (7)
  1. JANUVIA [Suspect]
     Indication: DIABETES MELLITUS NON-INSULIN-DEPENDENT
     Dosage: 100 MG/DAILY/PO
     Route: 048
     Dates: start: 20061107, end: 20061113
  2. AVANDIA [Concomitant]
  3. CRESTOR [Concomitant]
  4. DIOVAN HCT [Concomitant]
  5. TIAZAC [Concomitant]
  6. TRICOR [Concomitant]
  7. METFORMIN [Concomitant]

REACTIONS (3)
  - FLUSHING [None]
  - HOT FLUSH [None]
  - PARAESTHESIA [None]
